FAERS Safety Report 23388799 (Version 2)
Quarter: 2024Q1

REPORT INFORMATION
  Report Type: Report from Study
  Country: US (occurrence: US)
  Receive Date: 20240110
  Receipt Date: 20240122
  Transmission Date: 20240410
  Serious: No
  Sender: FDA-Public Use
  Company Number: US-Eisai-EC-2023-155801

PATIENT
  Age: 72 Year
  Sex: Female

DRUGS (3)
  1. LENVIMA [Suspect]
     Active Substance: LENVATINIB
     Indication: Endometrial cancer
     Dosage: HELD FOR 1.5 WEEK
     Route: 048
     Dates: start: 20231128
  2. LENVIMA [Suspect]
     Active Substance: LENVATINIB
     Route: 048
     Dates: start: 202312
  3. KEYTRUDA [Concomitant]
     Active Substance: PEMBROLIZUMAB
     Indication: Endometrial cancer
     Dosage: DOSE AND FREQUENCY UNKNOWN

REACTIONS (16)
  - Electrocardiogram abnormal [Unknown]
  - Muscular weakness [Unknown]
  - Neuropathy peripheral [Unknown]
  - Brain fog [Unknown]
  - Nasal mucosal ulcer [Unknown]
  - Fatigue [Unknown]
  - Constipation [Unknown]
  - Hypersensitivity [Unknown]
  - Cough [Unknown]
  - Wheezing [Unknown]
  - Blister [Unknown]
  - Asthenia [Unknown]
  - Tooth discolouration [Unknown]
  - Rash pruritic [Unknown]
  - Cardiac disorder [Unknown]
  - Eye disorder [Recovered/Resolved]

NARRATIVE: CASE EVENT DATE: 20231201
